FAERS Safety Report 12695044 (Version 3)
Quarter: 2016Q4

REPORT INFORMATION
  Report Type: Spontaneous
  Country: US (occurrence: US)
  Receive Date: 20160829
  Receipt Date: 20161110
  Transmission Date: 20170207
  Serious: Yes (Hospitalization, Other)
  Sender: FDA-Public Use
  Company Number: US-BAYER-2016-162153

PATIENT
  Age: 25 Year
  Sex: Female
  Weight: 90.7 kg

DRUGS (1)
  1. MIRENA [Suspect]
     Active Substance: LEVONORGESTREL
     Indication: CONTRACEPTION
     Dosage: 20 MCG/24HR, CONT
     Route: 015
     Dates: start: 20100805, end: 20121114

REACTIONS (8)
  - Device use issue [None]
  - Anxiety [None]
  - Depression [None]
  - Drug ineffective [None]
  - Ruptured ectopic pregnancy [None]
  - Uterine perforation [None]
  - Ectopic pregnancy with contraceptive device [None]
  - Pulmonary embolism [None]

NARRATIVE: CASE EVENT DATE: 2012
